FAERS Safety Report 10133406 (Version 1)
Quarter: 2014Q2

REPORT INFORMATION
  Report Type: Spontaneous
  Country: US (occurrence: US)
  Receive Date: 20140428
  Receipt Date: 20140428
  Transmission Date: 20141212
  Serious: Yes (Other)
  Sender: FDA-Public Use
  Company Number: US-SA-2014SA051666

PATIENT
  Age: 28 Year
  Sex: Female

DRUGS (2)
  1. LOVENOX [Suspect]
     Indication: PREGNANCY
     Route: 065
     Dates: start: 200903, end: 201108
  2. COUMADIN [Concomitant]

REACTIONS (2)
  - HELLP syndrome [Recovered/Resolved]
  - Exposure during pregnancy [Unknown]
